FAERS Safety Report 10574122 (Version 1)
Quarter: 2014Q4

REPORT INFORMATION
  Report Type: Report from Study
  Country: AR (occurrence: AR)
  Receive Date: 20141110
  Receipt Date: 20141110
  Transmission Date: 20150529
  Serious: Yes (Hospitalization, Other)
  Sender: FDA-Public Use
  Company Number: PHHY2014AR144484

PATIENT
  Sex: Female

DRUGS (4)
  1. SEEBRI BREEZHALER [Suspect]
     Active Substance: GLYCOPYRROLATE
     Indication: OFF LABEL USE
  2. ONBREZ BREEZHALER [Suspect]
     Active Substance: INDACATEROL
     Indication: OFF LABEL USE
  3. ONBREZ BREEZHALER [Suspect]
     Active Substance: INDACATEROL
     Indication: LUNG DISORDER
     Dosage: 1 DF, QD
     Route: 055
  4. SEEBRI BREEZHALER [Suspect]
     Active Substance: GLYCOPYRROLATE
     Indication: LUNG DISORDER
     Dosage: 1 DF, QD
     Route: 055

REACTIONS (1)
  - Mass [Recovering/Resolving]
